FAERS Safety Report 21099215 (Version 2)
Quarter: 2022Q3

REPORT INFORMATION
  Report Type: Other
  Country: US (occurrence: None)
  Receive Date: 20220719
  Receipt Date: 20220722
  Transmission Date: 20221027
  Serious: Yes (Other)
  Sender: FDA-Public Use
  Company Number: US-ROCHE-3136156

PATIENT
  Sex: Female

DRUGS (1)
  1. EVRYSDI [Suspect]
     Active Substance: RISDIPLAM
     Indication: Spinal muscular atrophy
     Dosage: FORMULATION : ORAL LIQUID
     Route: 048
     Dates: start: 20210301, end: 20220630

REACTIONS (2)
  - Rectal cancer [Unknown]
  - Abdominal discomfort [Unknown]
